FAERS Safety Report 9995822 (Version 4)
Quarter: 2014Q3

REPORT INFORMATION
  Report Type: Report from Study
  Country: BE (occurrence: BE)
  Receive Date: 20140311
  Receipt Date: 20140912
  Transmission Date: 20150326
  Serious: Yes (Death, Hospitalization, Other)
  Sender: FDA-Public Use
  Company Number: BE-CELGENEUS-013-22393-14011439

PATIENT
  Age: 80 Year
  Sex: Female
  Weight: 56.2 kg

DRUGS (5)
  1. ADRIAMYCIN [Suspect]
     Active Substance: DOXORUBICIN HYDROCHLORIDE
     Indication: T-CELL LYMPHOMA
     Route: 065
     Dates: start: 20131217, end: 20140128
  2. PREDNISOLONE. [Suspect]
     Active Substance: PREDNISOLONE
     Indication: T-CELL LYMPHOMA
     Route: 065
     Dates: start: 20131217, end: 20140128
  3. CYCLOPHOSPHAMIDE. [Suspect]
     Active Substance: CYCLOPHOSPHAMIDE
     Indication: T-CELL LYMPHOMA
     Route: 065
     Dates: start: 20131217, end: 20140128
  4. ROMIDEPSIN [Suspect]
     Active Substance: ROMIDEPSIN
     Indication: T-CELL LYMPHOMA
     Dosage: 18 MILLIGRAM
     Route: 065
     Dates: start: 20131217, end: 20140128
  5. VINCRISTINE [Suspect]
     Active Substance: VINCRISTINE
     Indication: T-CELL LYMPHOMA
     Route: 065
     Dates: start: 20131217, end: 20140128

REACTIONS (3)
  - Pyrexia [Not Recovered/Not Resolved]
  - Acute myocardial infarction [Recovered/Resolved]
  - Escherichia sepsis [Fatal]

NARRATIVE: CASE EVENT DATE: 20140107
